FAERS Safety Report 7407569-3 (Version None)
Quarter: 2011Q2

REPORT INFORMATION
  Report Type: 
  Country: None (occurrence: None)
  Receive Date: 20110406
  Receipt Date: 20110406
  Transmission Date: 20111010
  Serious: Yes (Hospitalization, Disabling)
  Sender: FDA-Public Use
  Company Number: None

PATIENT
  Age: 63 Year
  Sex: Male
  Weight: 105 kg

DRUGS (2)
  1. VANCOMYCIN [Suspect]
     Indication: INFECTION
     Dosage: 1 GM BID IV
     Route: 042
     Dates: start: 20110309
  2. COLISTIMETHATE [Suspect]
     Indication: INFECTION
     Dosage: 150 MG BID IV
     Route: 042
     Dates: start: 20110311, end: 20110328

REACTIONS (2)
  - RENAL FAILURE ACUTE [None]
  - ANTIBIOTIC LEVEL ABOVE THERAPEUTIC [None]
